FAERS Safety Report 8775455 (Version 2)
Quarter: 2012Q4

REPORT INFORMATION
  Report Type: 
  Country: JP (occurrence: JP)
  Receive Date: 20120910
  Receipt Date: 20121004
  Transmission Date: 20130627
  Serious: Yes (Other)
  Sender: FDA-Public Use
  Company Number: JP-AMGEN-JPNCT2012056506

PATIENT
  Age: 65 Year
  Sex: Female
  Weight: 62 kg

DRUGS (9)
  1. ROMIPLOSTIM [Suspect]
     Indication: IDIOPATHIC THROMBOCYTOPENIC PURPURA
     Dosage: 1 mug/kg, qwk
     Route: 058
     Dates: start: 20110509
  2. ROMIPLOSTIM [Suspect]
     Dosage: 2 mug/kg, qwk
     Route: 058
     Dates: start: 20110523, end: 20110530
  3. ROMIPLOSTIM [Suspect]
     Dosage: 3 mug/kg, qwk
     Route: 058
     Dates: start: 20110606, end: 20110613
  4. ROMIPLOSTIM [Suspect]
     Dosage: 4 mug/kg, qwk
     Route: 058
     Dates: start: 20110620, end: 20110711
  5. ROMIPLOSTIM [Suspect]
     Dosage: 4 mug/kg, qwk
     Route: 058
     Dates: start: 20110725
  6. PREDNISOLONE [Concomitant]
     Indication: IDIOPATHIC THROMBOCYTOPENIC PURPURA
     Dosage: UNK
     Route: 048
     Dates: start: 20110426, end: 20110509
  7. AMARYL [Concomitant]
     Indication: DIABETES MELLITUS
     Dosage: UNK
     Route: 048
  8. AMARYL [Concomitant]
     Dosage: Amount 1 and Asa 2mg
     Route: 048
  9. AMLODIPINE [Concomitant]
     Indication: HYPERTENSION
     Dosage: UNK
     Route: 048

REACTIONS (1)
  - Hypothyroidism [Recovering/Resolving]
